FAERS Safety Report 13644409 (Version 1)
Quarter: 2017Q2

REPORT INFORMATION
  Report Type: Spontaneous
  Country: US (occurrence: US)
  Receive Date: 20170612
  Receipt Date: 20170612
  Transmission Date: 20170830
  Serious: No
  Sender: FDA-Public Use
  Company Number: US-ROCHE-1355054

PATIENT
  Age: 60 Year
  Sex: Female

DRUGS (4)
  1. NADOLOL. [Concomitant]
     Active Substance: NADOLOL
  2. LISINOPRIL. [Concomitant]
     Active Substance: LISINOPRIL
  3. NIFEDIPINE. [Concomitant]
     Active Substance: NIFEDIPINE
  4. XELODA [Suspect]
     Active Substance: CAPECITABINE
     Indication: GALLBLADDER CANCER
     Route: 048
     Dates: start: 20140215

REACTIONS (3)
  - Hypotension [Not Recovered/Not Resolved]
  - Nausea [Not Recovered/Not Resolved]
  - Dizziness [Not Recovered/Not Resolved]

NARRATIVE: CASE EVENT DATE: 20140221
